FAERS Safety Report 15739673 (Version 2)
Quarter: 2019Q1

REPORT INFORMATION
  Report Type: Report from Study
  Country: TW (occurrence: TW)
  Receive Date: 20181219
  Receipt Date: 20190102
  Transmission Date: 20190417
  Serious: Yes (Hospitalization)
  Sender: FDA-Public Use
  Company Number: TW-JNJFOC-20181214653

PATIENT
  Age: 66 Year
  Sex: Male
  Weight: 50 kg

DRUGS (1)
  1. STELARA [Suspect]
     Active Substance: USTEKINUMAB
     Indication: PSORIASIS
     Route: 058
     Dates: start: 20170929, end: 20180929

REACTIONS (3)
  - Hallucination, auditory [Unknown]
  - Depressed mood [Unknown]
  - Neurodegenerative disorder [Unknown]

NARRATIVE: CASE EVENT DATE: 2018
